FAERS Safety Report 10509272 (Version 2)
Quarter: 2014Q4

REPORT INFORMATION
  Report Type: Spontaneous
  Country: JP (occurrence: JP)
  Receive Date: 20141009
  Receipt Date: 20141013
  Transmission Date: 20150528
  Serious: Yes (Death, Hospitalization, Other)
  Sender: FDA-Public Use
  Company Number: JP-009507513-1410JPN001037

PATIENT
  Age: 79 Year
  Sex: Male
  Weight: 43 kg

DRUGS (6)
  1. CANCIDAS [Suspect]
     Active Substance: CASPOFUNGIN ACETATE
     Indication: FEBRILE NEUTROPENIA
     Dosage: 50 MG, QD
     Route: 041
     Dates: start: 20140913, end: 20140916
  2. CANCIDAS [Suspect]
     Active Substance: CASPOFUNGIN ACETATE
     Indication: FEBRILE NEUTROPENIA
     Dosage: 70 MG, QD
     Route: 041
     Dates: start: 20140912, end: 20140912
  3. CANCIDAS [Suspect]
     Active Substance: CASPOFUNGIN ACETATE
     Indication: FUNGAL INFECTION
  4. MEROPEN [Concomitant]
     Active Substance: MEROPENEM
     Indication: FEBRILE NEUTROPENIA
     Dosage: 0.5 G, TID
     Route: 051
     Dates: start: 20140901, end: 20140914
  5. CRAVIT [Suspect]
     Active Substance: LEVOFLOXACIN
     Indication: FEBRILE NEUTROPENIA
     Dosage: 500 MG, QD
     Route: 051
     Dates: start: 20140915, end: 20140925
  6. SOL MELCORT [Concomitant]
     Active Substance: METHYLPREDNISOLONE
     Indication: PNEUMONIA
     Dosage: 125 MG, QD
     Route: 051
     Dates: start: 20140917, end: 20140926

REACTIONS (7)
  - Liver disorder [Not Recovered/Not Resolved]
  - Neutropenia [Recovered/Resolved]
  - Hypokalaemia [Recovered/Resolved]
  - Respiratory failure [Fatal]
  - Pneumonia [Fatal]
  - Drug ineffective [Unknown]
  - C-reactive protein increased [Not Recovered/Not Resolved]

NARRATIVE: CASE EVENT DATE: 20140916
